FAERS Safety Report 4578224-2 (Version None)
Quarter: 2005Q1

REPORT INFORMATION
  Report Type: 
  Country: None (occurrence: None)
  Receive Date: 20050209
  Receipt Date: 20050126
  Transmission Date: 20050727
  Serious: Yes (Death, Hospitalization)
  Sender: FDA-Public Use
  Company Number: 2004AL000687

PATIENT
  Age: 53 Year
  Sex: Male

DRUGS (5)
  1. KADIAN [Suspect]
     Dosage: PO
     Route: 048
  2. TRAMADOL HCL [Suspect]
     Dosage: PO
     Route: 048
  3. AMITRIPTYLINE [Suspect]
     Dosage: PO
     Route: 048
  4. CODEINE [Suspect]
     Dosage: PO
     Route: 048
  5. TRAZODONE HCL [Suspect]
     Dosage: PO
     Route: 048

REACTIONS (11)
  - ANOXIC ENCEPHALOPATHY [None]
  - BLOOD PH DECREASED [None]
  - BRAIN DEATH [None]
  - CARDIAC ARREST [None]
  - CARDIO-RESPIRATORY ARREST [None]
  - COMPLETED SUICIDE [None]
  - DRUG SCREEN POSITIVE [None]
  - HEART RATE DECREASED [None]
  - LOSS OF CONSCIOUSNESS [None]
  - MULTIPLE DRUG OVERDOSE [None]
  - PUPILLARY DISORDER [None]
